FAERS Safety Report 20576501 (Version 1)
Quarter: 2022Q1

REPORT INFORMATION
  Report Type: Spontaneous
  Country: US (occurrence: US)
  Receive Date: 20220310
  Receipt Date: 20220310
  Transmission Date: 20220424
  Serious: Yes (Hospitalization)
  Sender: FDA-Public Use
  Company Number: US-STRIDES ARCOLAB LIMITED-2022SP000047

PATIENT
  Age: 45 Year
  Sex: Male

DRUGS (5)
  1. PREDNISOLONE [Suspect]
     Active Substance: PREDNISOLONE
     Indication: Necrotising retinitis
     Dosage: UNK
     Route: 065
  2. ACYCLOVIR [Suspect]
     Active Substance: ACYCLOVIR
     Indication: Necrotising retinitis
     Dosage: UNK
     Route: 042
  3. FOSCARNET [Suspect]
     Active Substance: FOSCARNET
     Indication: Necrotising retinitis
     Dosage: UNK
  4. FOSCARNET [Suspect]
     Active Substance: FOSCARNET
     Dosage: UNK, 6 INJECTION (INJECTION)
     Route: 065
  5. GANCICLOVIR [Suspect]
     Active Substance: GANCICLOVIR
     Indication: Necrotising retinitis
     Dosage: UNK, FIVE INJECTIONS
     Route: 065

REACTIONS (1)
  - Drug ineffective [Unknown]
